FAERS Safety Report 20496803 (Version 1)
Quarter: 2022Q1

REPORT INFORMATION
  Report Type: Spontaneous
  Country: JP (occurrence: JP)
  Receive Date: 20220221
  Receipt Date: 20220221
  Transmission Date: 20220423
  Serious: Yes (Hospitalization, Other)
  Sender: FDA-Public Use
  Company Number: JP-dspharma-2022DSP002022AA

PATIENT
  Age: 33 Year
  Sex: Male

DRUGS (8)
  1. LATUDA [Suspect]
     Active Substance: LURASIDONE HYDROCHLORIDE
     Indication: Schizophrenia
     Dosage: 40 MG, QD
     Route: 048
  2. BLONANSERIN [Suspect]
     Active Substance: BLONANSERIN
     Indication: Schizophrenia
     Dosage: 12 MG, QD
     Route: 048
  3. BLONANSERIN [Suspect]
     Active Substance: BLONANSERIN
     Dosage: 8 MG, QD
     Route: 048
  4. BLONANSERIN [Suspect]
     Active Substance: BLONANSERIN
     Indication: Schizophrenia
     Dosage: 80 MG, QD, FROM 4TH HOSPITALIZATION
     Route: 062
  5. LITHIUM CARBONATE [Suspect]
     Active Substance: LITHIUM CARBONATE
     Indication: Schizophrenia
     Dosage: 1000 MG, QD
     Route: 048
  6. ASENAPINE MALEATE [Suspect]
     Active Substance: ASENAPINE MALEATE
     Indication: Schizophrenia
     Dosage: 10 MG, QD, FROM 4TH HOSPITALIZATION
     Route: 060
  7. REXULTI [Concomitant]
     Active Substance: BREXPIPRAZOLE
     Indication: Schizophrenia
     Dosage: UNK
     Route: 065
  8. AKINETON [Concomitant]
     Active Substance: BIPERIDEN HYDROCHLORIDE
     Indication: Schizophrenia
     Dosage: 2 MG, QD
     Route: 065

REACTIONS (9)
  - Delusion [Unknown]
  - Hallucination [Unknown]
  - Delusion [Unknown]
  - Dystonia [Unknown]
  - Oculogyric crisis [Recovered/Resolved]
  - Dystonia [Unknown]
  - Oculogyric crisis [Not Recovered/Not Resolved]
  - Pruritus [Unknown]
  - Mania [Unknown]

NARRATIVE: CASE EVENT DATE: 20211215
